FAERS Safety Report 9916242 (Version 2)
Quarter: 2014Q1

REPORT INFORMATION
  Report Type: Spontaneous
  Country: US (occurrence: US)
  Receive Date: 20140221
  Receipt Date: 20140221
  Transmission Date: 20141002
  Serious: Yes (Disabling, Other)
  Sender: FDA-Public Use
  Company Number: US-GE HEALTHCARE MEDICAL DIAGNOSTICS-OSCN-PR-0905S-0225

PATIENT
  Age: 35 Year
  Sex: Male

DRUGS (4)
  1. OMNISCAN [Suspect]
     Indication: ABDOMINAL PAIN
     Route: 042
     Dates: start: 20020329, end: 20020329
  2. OMNISCAN [Suspect]
     Indication: OSTEONECROSIS
     Route: 042
     Dates: start: 20020412, end: 20020412
  3. OMNISCAN [Suspect]
     Indication: PAIN IN EXTREMITY
     Route: 042
     Dates: start: 20030221, end: 20030221
  4. VICODIN [Concomitant]
     Dates: start: 200210

REACTIONS (1)
  - Nephrogenic systemic fibrosis [Not Recovered/Not Resolved]
